FAERS Safety Report 8369020-9 (Version None)
Quarter: 2012Q2

REPORT INFORMATION
  Report Type: 
  Country: None (occurrence: None)
  Receive Date: 20120518
  Receipt Date: 20120515
  Transmission Date: 20120825
  Serious: No
  Sender: FDA-Public Use
  Company Number: US-PFIZER INC-2012120190

PATIENT
  Sex: Female

DRUGS (3)
  1. LAMISIL [Suspect]
  2. METHOTREXATE SODIUM [Suspect]
  3. BACTRIM [Suspect]

REACTIONS (1)
  - DRUG HYPERSENSITIVITY [None]
